FAERS Safety Report 16019779 (Version 2)
Quarter: 2019Q1

REPORT INFORMATION
  Report Type: Report from Study
  Country: None (occurrence: TR)
  Receive Date: 20190228
  Receipt Date: 20190307
  Transmission Date: 20190418
  Serious: Yes (Death, Hospitalization)
  Sender: FDA-Public Use
  Company Number: TR-ABBVIE-19S-161-2644177-00

PATIENT
  Age: 83 Year
  Sex: Male
  Weight: 70 kg

DRUGS (10)
  1. RABIZA [Concomitant]
     Indication: PROPHYLAXIS
     Route: 048
     Dates: start: 2013
  2. DUODOPA [Suspect]
     Active Substance: CARBIDOPA\LEVODOPA
     Indication: PARKINSON^S DISEASE
     Dosage: MD (ML): 11,00 CD (ML): 5,00 ED (ML): 1,00
     Route: 050
     Dates: start: 20130603, end: 20190128
  3. GUTRON [Concomitant]
     Active Substance: MIDODRINE
     Indication: ORTHOSTATIC HYPOTENSION
     Route: 048
     Dates: start: 20171214
  4. DUODOPA [Suspect]
     Active Substance: CARBIDOPA\LEVODOPA
     Dosage: MD (ML): 9,00 CD (ML): 3,50 ED (ML): 1,00
     Route: 050
     Dates: start: 20190131
  5. DUODOPA [Suspect]
     Active Substance: CARBIDOPA\LEVODOPA
     Dosage: MD (ML): 10,00 CD (ML): 4,70 ED (ML): 1,00
     Route: 050
     Dates: start: 20190128, end: 20190130
  6. DOPALEVO [Concomitant]
     Indication: PARKINSON^S DISEASE
     Route: 048
     Dates: start: 2016
  7. BENEXOL [Concomitant]
     Active Substance: CYANOCOBALAMIN\PYRIDOXINE\THIAMINE
     Indication: VITAMIN SUPPLEMENTATION
     Route: 048
     Dates: start: 2013
  8. DUODOPA [Suspect]
     Active Substance: CARBIDOPA\LEVODOPA
     Dosage: MD (ML): 10,00 CD (ML): 4,50 ED (ML): 1,00
     Route: 050
     Dates: start: 20190131, end: 20190131
  9. DUODOPA [Suspect]
     Active Substance: CARBIDOPA\LEVODOPA
     Dosage: MD (ML): 10,00 CD (ML): 4,70 ED (ML): 1,00
     Route: 050
     Dates: start: 20190130, end: 20190131
  10. MOTILIUM [Concomitant]
     Active Substance: DOMPERIDONE
     Indication: PARKINSON^S DISEASE
     Route: 048
     Dates: start: 2013

REACTIONS (4)
  - Dyskinesia [Recovered/Resolved]
  - C-reactive protein increased [Recovering/Resolving]
  - Death [Fatal]
  - Diarrhoea [Recovered/Resolved]

NARRATIVE: CASE EVENT DATE: 20190113
